FAERS Safety Report 16427280 (Version 1)
Quarter: 2019Q2

REPORT INFORMATION
  Report Type: Report from Study
  Country: ES (occurrence: ES)
  Receive Date: 20190613
  Receipt Date: 20190613
  Transmission Date: 20190711
  Serious: Yes (Hospitalization)
  Sender: FDA-Public Use
  Company Number: ES-TEVA-2019-ES-1061765

PATIENT
  Age: 78 Year
  Sex: Female

DRUGS (2)
  1. INDAPAMIDA [Suspect]
     Active Substance: INDAPAMIDE
     Route: 065
     Dates: start: 2017
  2. ENALAPRIL/HIDROCLOROTIAZIDA [Suspect]
     Active Substance: ENALAPRIL\HYDROCHLOROTHIAZIDE
     Route: 065
     Dates: start: 2017

REACTIONS (1)
  - Toxic skin eruption [Recovered/Resolved]

NARRATIVE: CASE EVENT DATE: 20170516
